FAERS Safety Report 25638536 (Version 1)
Quarter: 2025Q3

REPORT INFORMATION
  Report Type: Spontaneous
  Country: AU (occurrence: AU)
  Receive Date: 20250804
  Receipt Date: 20250804
  Transmission Date: 20251020
  Serious: Yes (Other)
  Sender: STRIDES
  Company Number: AU-STRIDES ARCOLAB LIMITED-2025SP009670

PATIENT
  Age: 62 Year
  Sex: Female

DRUGS (11)
  1. PREDNISOLONE [Suspect]
     Active Substance: PREDNISOLONE
     Indication: Immune-mediated enterocolitis
     Route: 048
  2. PREDNISOLONE [Suspect]
     Active Substance: PREDNISOLONE
     Route: 048
  3. PREDNISOLONE [Suspect]
     Active Substance: PREDNISOLONE
     Route: 048
  4. BUDESONIDE [Suspect]
     Active Substance: BUDESONIDE
     Indication: Immune-mediated enterocolitis
     Route: 048
  5. BUDESONIDE [Suspect]
     Active Substance: BUDESONIDE
     Route: 048
  6. BUDESONIDE [Suspect]
     Active Substance: BUDESONIDE
     Route: 048
  7. GLOFITAMAB [Concomitant]
     Active Substance: GLOFITAMAB
     Indication: Follicular lymphoma
     Route: 065
  8. GLOFITAMAB [Concomitant]
     Active Substance: GLOFITAMAB
     Route: 065
  9. GLOFITAMAB [Concomitant]
     Active Substance: GLOFITAMAB
     Route: 065
  10. GLOFITAMAB [Concomitant]
     Active Substance: GLOFITAMAB
     Route: 065
  11. GLOFITAMAB [Concomitant]
     Active Substance: GLOFITAMAB
     Route: 065

REACTIONS (2)
  - Rebound effect [Recovering/Resolving]
  - Off label use [Unknown]
